FAERS Safety Report 4487024-3 (Version None)
Quarter: 2004Q3

REPORT INFORMATION
  Report Type: 
  Country: None (occurrence: None)
  Receive Date: 20040921
  Receipt Date: 20040408
  Transmission Date: 20050211
  Serious: Yes (Death, Hospitalization)
  Sender: FDA-Public Use
  Company Number: 163-20785-04040223

PATIENT
  Age: 57 Year
  Sex: Male

DRUGS (16)
  1. THALOMID [Suspect]
     Indication: MULTIPLE MYELOMA
     Dosage: ORAL
     Route: 048
     Dates: start: 20010801
  2. DEXAMETHASONE [Suspect]
     Indication: MULTIPLE MYELOMA
     Dates: start: 20010801
  3. CISPLATIN [Suspect]
     Indication: MULTIPLE MYELOMA
     Dates: start: 20010801
  4. ADRIAMYCIN PFS [Suspect]
     Indication: MULTIPLE MYELOMA
     Dates: start: 20010801
  5. CYCLOPHOSPHAMIDE [Suspect]
     Indication: MULTIPLE MYELOMA
     Dates: start: 20010801
  6. ETOPOSIDE [Suspect]
     Indication: MULTIPLE MYELOMA
     Dates: start: 20010801
  7. MELPHALAN (MELPHALAN) [Suspect]
     Indication: MULTIPLE MYELOMA
     Dosage: 200 MG
  8. VELCADE [Suspect]
     Indication: MULTIPLE MYELOMA
     Dosage: 1 MG/M2 ON DAYS 1,4,8,11
  9. TEQUIN [Concomitant]
  10. ACYCLOVIR [Concomitant]
  11. ALLEGRA [Concomitant]
  12. NEURONTIN [Concomitant]
  13. AXID [Concomitant]
  14. MULTIVITAMIN [Concomitant]
  15. FOLIC ACID [Concomitant]
  16. TERAZOSIN (TERAZOSIN) [Concomitant]

REACTIONS (13)
  - ALOPECIA [None]
  - ATRIAL FIBRILLATION [None]
  - BACTERAEMIA [None]
  - DEATH [None]
  - DISEASE PROGRESSION [None]
  - DYSPNOEA [None]
  - FEBRILE NEUTROPENIA [None]
  - PNEUMONIA [None]
  - RASH ERYTHEMATOUS [None]
  - RENAL FAILURE [None]
  - SINUSITIS [None]
  - THORACIC VERTEBRAL FRACTURE [None]
  - THROMBOCYTOPENIA [None]
